FAERS Safety Report 5873106-8 (Version None)
Quarter: 2008Q3

REPORT INFORMATION
  Report Type: 
  Country: None (occurrence: None)
  Receive Date: 20080908
  Receipt Date: 20080827
  Transmission Date: 20090109
  Serious: Yes (Hospitalization)
  Sender: FDA-Public Use
  Company Number: GB-RANBAXY-2008RR-17619

PATIENT

DRUGS (21)
  1. CIPROFLOXACIN [Suspect]
     Dosage: 500 MG, BID
     Route: 048
     Dates: start: 20080724, end: 20080726
  2. ACYCLOVIR [Concomitant]
     Dosage: 5 %, UNK
     Route: 065
  3. AMOXICILLIN [Concomitant]
     Dosage: 500 MG, TID
     Route: 065
  4. CETIRIZINE HYDROCHLORIDE [Concomitant]
     Dosage: 10 MG, QD
     Route: 048
     Dates: start: 20080720
  5. CLARITHROMYCIN [Concomitant]
     Dosage: 500 MG, UNK
     Route: 042
     Dates: start: 20070626
  6. AMOXICILLIN + CLAVULANATE POTASSIUM [Concomitant]
     Dosage: 1 DF, TID
     Route: 065
  7. CODEINE PHOSPHATE [Concomitant]
     Dosage: UNK
  8. FLUOXETINE HYDROCHLORIDE [Concomitant]
     Dosage: 40 MG, QD
     Route: 048
  9. GLICLAZIDE [Concomitant]
     Dosage: 40 MG, UNK
     Route: 048
     Dates: start: 20080726
  10. GLICLAZIDE [Concomitant]
     Dosage: 80 MG, QD
     Route: 048
  11. LACTULOSE [Concomitant]
     Dosage: 20 ML, BID
     Route: 065
  12. LANSOPRAZOLE [Concomitant]
     Dosage: 30 MG, QD
     Route: 048
  13. LOPERAMIDE HYDROCHLORIDE [Concomitant]
     Dosage: 2 MG, PRN
     Route: 065
  14. METOCLOPRAMIDE [Concomitant]
     Route: 042
  15. METRONIDAZOLE [Concomitant]
     Dosage: 400 MG, TID
     Route: 065
  16. ACETAMINOPHEN [Concomitant]
     Dosage: 1 G, QID
     Route: 048
     Dates: start: 20080726
  17. PROPCHLORPERAZINE MALEATE [Concomitant]
     Indication: NAUSEA
     Dosage: 5 MG, TID
     Route: 065
  18. SODIUM BICARBONATE [Concomitant]
     Dosage: 5 %, BID
     Route: 065
  19. TIMODINE [Concomitant]
     Dosage: UNK
     Route: 065
  20. TRAMADOL HCL [Concomitant]
     Dosage: UNK
     Route: 065
  21. TRIMETHOPRIM [Concomitant]
     Dosage: 200 MG, BID
     Route: 065

REACTIONS (1)
  - RASH MACULO-PAPULAR [None]
